FAERS Safety Report 9511496 (Version 1)
Quarter: 2013Q3

REPORT INFORMATION
  Report Type: Spontaneous
  Country: US (occurrence: None)
  Receive Date: 20130909
  Receipt Date: 20130909
  Transmission Date: 20140515
  Serious: Yes (Disabling, Other)
  Sender: FDA-Public Use
  Company Number: None

PATIENT
  Age: 57 Year
  Sex: Male
  Weight: 114.76 kg

DRUGS (4)
  1. ZONEGRAN [Suspect]
     Indication: ESSENTIAL TREMOR
     Dosage: 1 TAB ONCE DAILY TAKEN BY MOUTH
     Route: 048
     Dates: start: 20130626, end: 20130626
  2. LIPITOR (ATROVASTATIN) CAPLET 20MG [Concomitant]
  3. HUMALOG PEN (INSULIN LISPRO) [Concomitant]
  4. LANTUS PEN (INSULIN GLARING) [Concomitant]

REACTIONS (8)
  - Dizziness [None]
  - Nausea [None]
  - Vomiting [None]
  - Hallucination, visual [None]
  - Confusional state [None]
  - Speech disorder [None]
  - Back pain [None]
  - Posture abnormal [None]
